FAERS Safety Report 5405261-8 (Version None)
Quarter: 2007Q3

REPORT INFORMATION
  Report Type: 
  Country: None (occurrence: None)
  Receive Date: 20070803
  Receipt Date: 20070731
  Transmission Date: 20080115
  Serious: Yes (Other)
  Sender: FDA-Public Use
  Company Number: A0649590A

PATIENT
  Age: 66 Year
  Sex: Female
  Weight: 96.4 kg

DRUGS (1)
  1. AVANDARYL [Suspect]
     Indication: SWELLING
     Route: 048
     Dates: start: 20061120, end: 20070104

REACTIONS (1)
  - GENERAL PHYSICAL HEALTH DETERIORATION [None]
